FAERS Safety Report 11838151 (Version 3)
Quarter: 2016Q1

REPORT INFORMATION
  Report Type: Spontaneous
  Country: US (occurrence: US)
  Receive Date: 20151215
  Receipt Date: 20160224
  Transmission Date: 20160525
  Serious: No
  Sender: FDA-Public Use
  Company Number: US-GLAXOSMITHKLINE-US2015GSK168083

PATIENT
  Sex: Female

DRUGS (2)
  1. SUMATRIPTAN SOLUTION FOR INJECTION IN PRE-FILLED PEN [Suspect]
     Active Substance: SUMATRIPTAN
     Dosage: UNK
  2. SUMATRIPTAN SOLUTION FOR INJECTION IN PRE-FILLED PEN [Suspect]
     Active Substance: SUMATRIPTAN
     Indication: PRODUCT USED FOR UNKNOWN INDICATION
     Dosage: 6 MG, UNK

REACTIONS (7)
  - Anxiety [Recovered/Resolved]
  - Feeling hot [Recovered/Resolved]
  - Device use error [Unknown]
  - Product quality issue [Unknown]
  - Injury associated with device [Unknown]
  - Headache [Recovered/Resolved]
  - Neck pain [Unknown]
